FAERS Safety Report 21925984 (Version 2)
Quarter: 2023Q1

REPORT INFORMATION
  Report Type: Spontaneous
  Country: FR (occurrence: FR)
  Receive Date: 20230130
  Receipt Date: 20230214
  Transmission Date: 20230418
  Serious: Yes (Other)
  Sender: FDA-Public Use
  Company Number: FR-002147023-NVSC2022FR288376

PATIENT
  Sex: Female

DRUGS (3)
  1. EVEROLIMUS [Suspect]
     Active Substance: EVEROLIMUS
     Indication: Neuroendocrine tumour
     Dosage: RESUMPTION OF TREATMENT AT A REDUCED DOSE
     Route: 065
  2. EVEROLIMUS [Suspect]
     Active Substance: EVEROLIMUS
     Dosage: UNK (STOPPED AFTER THREE WEEKS)
     Route: 065
     Dates: start: 201701, end: 201701
  3. LANREOTIDE ACETATE [Concomitant]
     Active Substance: LANREOTIDE ACETATE
     Indication: Liver injury
     Dosage: 120 MG EVERY 4 WEEKS THEN EVERY 3 WEEKS
     Route: 065
     Dates: start: 201512

REACTIONS (2)
  - Interstitial lung disease [Unknown]
  - Thrombocytopenia [Unknown]

NARRATIVE: CASE EVENT DATE: 20191001
